FAERS Safety Report 8061703-3 (Version None)
Quarter: 2012Q1

REPORT INFORMATION
  Report Type: 
  Country: None (occurrence: None)
  Receive Date: 20120123
  Receipt Date: 20120111
  Transmission Date: 20120608
  Serious: Yes (Hospitalization)
  Sender: FDA-Public Use
  Company Number: US-BIOGENIDEC-2012BI001909

PATIENT
  Age: 30 Year
  Sex: Female

DRUGS (1)
  1. TYSABRI [Suspect]
     Indication: MULTIPLE SCLEROSIS
     Route: 042
     Dates: start: 20111117

REACTIONS (13)
  - APHASIA [None]
  - CONFUSIONAL STATE [None]
  - MEMORY IMPAIRMENT [None]
  - ASTHENIA [None]
  - MENTAL IMPAIRMENT [None]
  - VISUAL IMPAIRMENT [None]
  - TREMOR [None]
  - PYREXIA [None]
  - BALANCE DISORDER [None]
  - AMNESIA [None]
  - NEURALGIA [None]
  - PAIN [None]
  - DYSPHAGIA [None]
